FAERS Safety Report 15301779 (Version 3)
Quarter: 2018Q3

REPORT INFORMATION
  Report Type: Report from Study
  Country: DE (occurrence: DE)
  Receive Date: 20180821
  Receipt Date: 20180830
  Transmission Date: 20181010
  Serious: Yes (Hospitalization, Other)
  Sender: FDA-Public Use
  Company Number: PHHO2018DE009346

PATIENT
  Age: 55 Year
  Sex: Female
  Weight: 100 kg

DRUGS (20)
  1. GOSERELIN ACETATE [Suspect]
     Active Substance: GOSERELIN ACETATE
     Indication: BREAST CANCER
     Dosage: 3.6 MG, (1 X 4 WEEKS)
     Route: 058
     Dates: start: 20170425
  2. HYDROMORPHONE [Concomitant]
     Active Substance: HYDROMORPHONE
     Indication: METASTASES TO BONE
     Dosage: 6 MG, TID
     Route: 048
     Dates: start: 20170510, end: 20170520
  3. TRAUMEEL [Concomitant]
     Indication: SPINAL DISORDER
     Dosage: PRN
     Route: 058
     Dates: start: 201701, end: 201703
  4. PANTOPRAZOL [Concomitant]
     Active Substance: PANTOPRAZOLE SODIUM
     Indication: METASTASES TO BONE
     Dosage: 40 MG, QD
     Route: 048
     Dates: start: 201702
  5. HYDROMORPHONE [Concomitant]
     Active Substance: HYDROMORPHONE
     Dosage: 8 MG, QD  (EVERY MORNING QM)
     Route: 048
     Dates: start: 20180316, end: 20180508
  6. VITAMIN B12 [Concomitant]
     Active Substance: CYANOCOBALAMIN
     Indication: VITAMIN B12 DEFICIENCY
     Dosage: 1 DF, QD (1000 IE)
     Route: 048
     Dates: start: 20171011
  7. ISOPTO MAX [Concomitant]
     Indication: KERATITIS
     Dosage: DROP, SIX TIMES, SALVE QD
     Route: 047
     Dates: start: 20171230
  8. OXYCODON [Concomitant]
     Active Substance: OXYCODONE
     Indication: METASTASES TO BONE
     Dosage: 2 MG, TID
     Route: 048
     Dates: start: 201702, end: 20170510
  9. ACC [Concomitant]
     Active Substance: ACETYLCYSTEINE
     Indication: INFLUENZA
     Dosage: PRN, ML
     Route: 045
     Dates: start: 20171015
  10. CGS 20267 [Suspect]
     Active Substance: LETROZOLE
     Indication: BREAST CANCER
     Dosage: 2.5 MG, QD
     Route: 048
     Dates: start: 20170425
  11. NOVALGIN (METAMIZOLE SODIUM) [Concomitant]
     Active Substance: METAMIZOLE SODIUM
     Indication: METASTASES TO BONE
     Dosage: 500 MG, DREHE TIMES
     Route: 048
     Dates: start: 201702
  12. DOLO?DOBENDAN [Concomitant]
     Active Substance: BENZOCAINE\CETYLPYRIDINIUM CHLORIDE
     Indication: INFLUENZA
     Dosage: 1.4 MG, PRN
     Route: 048
     Dates: start: 20171015
  13. FOLIC ACID. [Concomitant]
     Active Substance: FOLIC ACID
     Indication: METASTASES TO BONE
     Dosage: 5 MG, QD
     Route: 048
     Dates: start: 201702
  14. HYDROMORPHONE [Concomitant]
     Active Substance: HYDROMORPHONE
     Indication: BACK PAIN
     Dosage: 8 MG, BID
     Route: 048
     Dates: start: 20170520
  15. HYDROMORPHONE [Concomitant]
     Active Substance: HYDROMORPHONE
     Dosage: 6 MG, QD (EVERY MORNING QM)
     Route: 048
     Dates: start: 20180130, end: 20180315
  16. RAMIPRIL. [Concomitant]
     Active Substance: RAMIPRIL
     Indication: HYPERTONIA
     Dosage: 5 MG, QD
     Route: 048
     Dates: start: 20170815
  17. LEE011 [Suspect]
     Active Substance: RIBOCICLIB
     Indication: BREAST CANCER
     Dosage: 600 MG, (D1, D21, D29)
     Route: 048
     Dates: start: 20170425, end: 20180806
  18. ZOLEDRONIC ACID [Concomitant]
     Active Substance: ZOLEDRONIC ACID
     Indication: METASTASES TO BONE
     Dosage: 4 MG, QW4
     Route: 042
     Dates: start: 20170327
  19. HYDROMORPHONE [Concomitant]
     Active Substance: HYDROMORPHONE
     Dosage: 4 MG, QD  (EVERY MORNING QM)
     Route: 048
     Dates: start: 20180509
  20. MOVICOL [Concomitant]
     Active Substance: POLYETHYLENE GLYCOL 3350\POTASSIUM CHLORIDE\SODIUM BICARBONATE\SODIUM CHLORIDE
     Indication: CONSTIPATION
     Dosage: 1 DF, QD (POUCH)
     Route: 048
     Dates: start: 20170523

REACTIONS (2)
  - Second primary malignancy [Not Recovered/Not Resolved]
  - Squamous cell carcinoma of the tongue [Not Recovered/Not Resolved]

NARRATIVE: CASE EVENT DATE: 20180730
